FAERS Safety Report 8313828-2 (Version None)
Quarter: 2012Q2

REPORT INFORMATION
  Report Type: 
  Country: None (occurrence: None)
  Receive Date: 20120426
  Receipt Date: 20120417
  Transmission Date: 20120825
  Serious: Yes (Other)
  Sender: FDA-Public Use
  Company Number: CA-JNJFOC-20120407692

PATIENT
  Sex: Male
  Weight: 90.4 kg

DRUGS (4)
  1. MESALAMINE [Concomitant]
     Dosage: 3-6 TAB OD
     Route: 048
  2. ASPIRIN [Concomitant]
     Route: 065
  3. REMICADE [Suspect]
     Indication: COLITIS ULCERATIVE
     Dosage: 5-6 YEARS AGO
     Route: 042
  4. REMICADE [Suspect]
     Dosage: 24 INFUSION
     Route: 042
     Dates: start: 20120417

REACTIONS (1)
  - BONE PAIN [None]
